FAERS Safety Report 8375481-1 (Version None)
Quarter: 2012Q2

REPORT INFORMATION
  Report Type: 
  Country: None (occurrence: None)
  Receive Date: 20120522
  Receipt Date: 20110203
  Transmission Date: 20120825
  Serious: Yes (Hospitalization)
  Sender: FDA-Public Use
  Company Number: DE-BAYER-2011-001571

PATIENT
  Age: 77 Year
  Sex: Male

DRUGS (2)
  1. AVELOX [Suspect]
     Indication: DIABETIC FOOT
     Dates: start: 20100518
  2. AVELOX [Suspect]
     Dosage: UNK
     Route: 048

REACTIONS (1)
  - BRONCHITIS [None]
